FAERS Safety Report 5799700-0 (Version None)
Quarter: 2008Q3

REPORT INFORMATION
  Report Type: 
  Country: None (occurrence: None)
  Receive Date: 20080702
  Receipt Date: 20080702
  Transmission Date: 20090109
  Serious: Yes (Life-Threatening, Hospitalization)
  Sender: FDA-Public Use
  Company Number: None

PATIENT
  Sex: Female
  Weight: 56.6996 kg

DRUGS (1)
  1. DIGITEK 0.125 MG BERTEK [Suspect]
     Indication: CARDIAC DISORDER
     Dosage: 1 TABLET DAILY, LAST GOT MED ON JANUARY 18 2008

REACTIONS (4)
  - CARDIOACTIVE DRUG LEVEL INCREASED [None]
  - FALL [None]
  - FOOT FRACTURE [None]
  - LOSS OF CONSCIOUSNESS [None]
